FAERS Safety Report 8593181-X (Version None)
Quarter: 2012Q3

REPORT INFORMATION
  Report Type: 
  Country: None (occurrence: None)
  Receive Date: 20120814
  Receipt Date: 20120810
  Transmission Date: 20120928
  Serious: Yes (Hospitalization)
  Sender: FDA-Public Use
  Company Number: FR-PFIZER INC-2012190966

PATIENT
  Age: 82 Year
  Sex: Female

DRUGS (5)
  1. CORDARONE [Suspect]
     Indication: ATRIAL FIBRILLATION
     Dosage: UNK
     Route: 048
  2. VITAMIN K TAB [Concomitant]
     Dosage: UNK
     Dates: start: 20120501
  3. LEVOFLOXACIN [Concomitant]
     Dosage: UNK
     Dates: start: 20120508, end: 20120518
  4. ROCEPHIN [Concomitant]
     Dosage: UNK
     Dates: start: 20120508, end: 20120518
  5. HEPARIN [Concomitant]
     Dosage: UNK
     Dates: start: 20120501

REACTIONS (4)
  - INTERSTITIAL LUNG DISEASE [None]
  - CARDIAC FAILURE [None]
  - ATRIAL THROMBOSIS [None]
  - PULMONARY EMBOLISM [None]
